FAERS Safety Report 15588597 (Version 1)
Quarter: 2018Q4

REPORT INFORMATION
  Report Type: Spontaneous
  Country: US (occurrence: US)
  Receive Date: 20181106
  Receipt Date: 20181106
  Transmission Date: 20190205
  Serious: No
  Sender: FDA-Public Use
  Company Number: US-ASTRAZENECA-2018SF42998

PATIENT

DRUGS (1)
  1. SEROQUEL [Suspect]
     Active Substance: QUETIAPINE FUMARATE
     Route: 048

REACTIONS (5)
  - Migraine [Unknown]
  - Memory impairment [Unknown]
  - Temporomandibular joint syndrome [Unknown]
  - Loss of personal independence in daily activities [Unknown]
  - Tremor [Unknown]
